FAERS Safety Report 9444804 (Version 1)
Quarter: 2013Q3

REPORT INFORMATION
  Report Type: Spontaneous
  Country: US (occurrence: US)
  Receive Date: 20130807
  Receipt Date: 20130807
  Transmission Date: 20140515
  Serious: No
  Sender: FDA-Public Use
  Company Number: US-US-EMD SERONO, INC.-7070459

PATIENT
  Age: 58 Year
  Sex: Female

DRUGS (2)
  1. REBIF [Suspect]
     Indication: MULTIPLE SCLEROSIS
     Route: 058
     Dates: start: 20110623
  2. REBIF [Suspect]
     Dates: start: 20110706

REACTIONS (3)
  - Spinal pain [Unknown]
  - Musculoskeletal stiffness [Not Recovered/Not Resolved]
  - Chills [Unknown]
